FAERS Safety Report 9752868 (Version 1)
Quarter: 2013Q4

REPORT INFORMATION
  Report Type: Spontaneous
  Country: US (occurrence: None)
  Receive Date: 20131211
  Receipt Date: 20131211
  Transmission Date: 20140711
  Serious: Yes (Hospitalization)
  Sender: FDA-Public Use
  Company Number: QSC-2013-0439

PATIENT
  Age: 26 Year
  Sex: Male
  Weight: 85.3 kg

DRUGS (25)
  1. LISINOPRIL (LISINOPRIL) [Concomitant]
  2. LASIX (FLUROSEMIDE) [Concomitant]
  3. H.P. ACTHAR GEL (ADRENOCORTICOTROPIC HORMONE) GEL FOR INJECTION, 80U/ML [Suspect]
     Indication: GLOMERULONEPHRITIS MINIMAL LESION
     Dosage: 60 UNITS, BIW
     Dates: start: 2013, end: 201311
  4. PREDNISONE [Concomitant]
  5. MARINOL [Concomitant]
  6. LANTUS (INSULIN GLARGINE) [Concomitant]
  7. ZOFRAN (ONDANSETRON) [Concomitant]
  8. PHENERGAN (PROMETHAZINE) [Concomitant]
  9. DIAMOX (ACETAZOLAMIDE) [Concomitant]
  10. CALCIUM + VITAMIN D (CALCIUM, COLECALCIFEROL) [Concomitant]
  11. FLEXERIL (CYCLOBENZAPRINE HYDROCHLORIDE) [Concomitant]
  12. BENTYL (DICYCLOVERINE HYDROCHLORIDE) [Concomitant]
  13. VITAMIN D2 (ERGOCALCIFEROL) [Concomitant]
  14. NOVOLOG (INSULIN ASPART) [Concomitant]
  15. ATIVAN (LORAZEPAM) [Concomitant]
  16. PROTONIX (PANTOPRAZOLE SODIUM SESQUIHYDRATE) [Concomitant]
  17. CARAFATE (SUCRALFATE) TABLET, 1G [Concomitant]
  18. IMITREX (SUMATRIPTAN) [Concomitant]
  19. VENTOLIN (SALBUTAMOL) [Concomitant]
  20. ALBUTEROL (SALBUTAMOL SULFATE) [Concomitant]
  21. DONNATAL (ATROPINE SULFATE, HYOSCINE HYDROBROMIDE, HYOSCYAMINE SULFATE, PHENOBARBITAL) [Concomitant]
  22. ZYRTEC (CETIRIZINE HYDROCHLORIDE) [Concomitant]
  23. EPIPEN (EPINEPHRINE) [Concomitant]
  24. GLUCAGON (GLUCAGON) [Concomitant]
  25. PROAMATINE (MIDODRINE HYDROCHLORIDE) [Concomitant]

REACTIONS (9)
  - Orthostatic hypotension [None]
  - Nausea [None]
  - Vomiting [None]
  - Diarrhoea [None]
  - Postural orthostatic tachycardia syndrome [None]
  - Autonomic nervous system imbalance [None]
  - Gastrooesophageal reflux disease [None]
  - Adrenal disorder [None]
  - Gastrointestinal disorder [None]
